FAERS Safety Report 9489230 (Version 2)
Quarter: 2013Q4

REPORT INFORMATION
  Report Type: Spontaneous
  Country: IT (occurrence: IT)
  Receive Date: 20130829
  Receipt Date: 20131016
  Transmission Date: 20140711
  Serious: Yes (Life-Threatening)
  Sender: FDA-Public Use
  Company Number: IT-PFIZER INC-2013246614

PATIENT
  Age: 92 Year
  Sex: Male

DRUGS (5)
  1. ZITROMAX [Suspect]
     Indication: PNEUMONITIS
     Dosage: 500 MG, SINGLE
     Route: 042
     Dates: start: 20130820, end: 20130820
  2. PANTOPRAZOLE [Concomitant]
     Dosage: 20 MG, UNK
     Route: 048
  3. CARDIOASPIRIN [Concomitant]
     Dosage: 100 MG, UNK
     Route: 048
  4. AUGMENTIN [Concomitant]
     Dosage: 1000 MG, UNK
     Route: 048
  5. AUGMENTIN [Concomitant]
     Dosage: 1000 MG, UNK
     Route: 042

REACTIONS (2)
  - Erythema [Recovered/Resolved]
  - Pulmonary oedema [Recovered/Resolved]
